FAERS Safety Report 12433430 (Version 2)
Quarter: 2016Q2

REPORT INFORMATION
  Report Type: Report from Study
  Country: EC (occurrence: EC)
  Receive Date: 20160603
  Receipt Date: 20160630
  Transmission Date: 20160815
  Serious: Yes (Hospitalization)
  Sender: FDA-Public Use
  Company Number: PHHY2016EC076445

PATIENT
  Age: 10 Year
  Sex: Male
  Weight: 32.7 kg

DRUGS (6)
  1. EXJADE [Suspect]
     Active Substance: DEFERASIROX
     Indication: SICKLE CELL ANAEMIA
     Dosage: 15 MG/KG, QD (500 MG)
     Route: 048
     Dates: start: 20140703, end: 20150630
  2. EXJADE [Suspect]
     Active Substance: DEFERASIROX
     Dosage: 25 MG/KG, QD (750 MG, 1 AND HALF TABLET OF 500 MG)
     Route: 048
     Dates: start: 20150701
  3. AMOXICILLIN. [Concomitant]
     Active Substance: AMOXICILLIN
     Indication: SICKLE CELL ANAEMIA
     Dosage: 3 DF, Q8H (ON MONDAYS, WEDNESDAYS AND FRIDAYS)
     Route: 065
  4. HYDROXYUREA. [Concomitant]
     Active Substance: HYDROXYUREA
     Indication: SICKLE CELL ANAEMIA
     Dosage: 1 DF, QHS
     Route: 065
  5. VITAMIN B COMPLEX [Concomitant]
     Active Substance: CYANOCOBALAMIN\DEXPANTHENOL\NIACINAMIDE\PYRIDOXINE HYDROCHLORIDE\RIBOFLAVIN 5^-PHOSPHATE SODIUM\THIAMINE HYDROCHLORIDE\VITAMIN B COMPLEX
     Indication: SICKLE CELL ANAEMIA
     Dosage: 1 OT, QHS
  6. FOLIC ACID. [Concomitant]
     Active Substance: FOLIC ACID
     Indication: SICKLE CELL ANAEMIA
     Dosage: 1 DF, QD
     Route: 065

REACTIONS (6)
  - Chest pain [Recovered/Resolved]
  - Back pain [Recovered/Resolved]
  - Sickle cell anaemia with crisis [Unknown]
  - Wrong technique in product usage process [Unknown]
  - Pain in extremity [Recovered/Resolved]
  - Abdominal pain [Recovered/Resolved]

NARRATIVE: CASE EVENT DATE: 20160514
